FAERS Safety Report 20920692 (Version 2)
Quarter: 2024Q4

REPORT INFORMATION
  Report Type: Report from Study
  Country: US (occurrence: US)
  Receive Date: 20220606
  Receipt Date: 20241015
  Transmission Date: 20250115
  Serious: Yes (Hospitalization, Other)
  Sender: NOVARTIS
  Company Number: US-NOVARTISPH-NVSC2022US129305

PATIENT
  Age: 67 Year
  Sex: Male
  Weight: 114.3 kg

DRUGS (2)
  1. ENTRESTO [Suspect]
     Active Substance: SACUBITRIL\VALSARTAN
     Indication: Cardiac failure
     Dosage: 49/51, BID (DISPERSABLE)
     Route: 048
     Dates: start: 202201, end: 202205
  2. ENTRESTO [Suspect]
     Active Substance: SACUBITRIL\VALSARTAN
     Dosage: 24/26
     Route: 048

REACTIONS (6)
  - Loss of consciousness [Recovered/Resolved]
  - Pneumonia [Unknown]
  - Pyrexia [Unknown]
  - Myocardial necrosis marker increased [Unknown]
  - Heat stroke [Unknown]
  - Blood pressure decreased [Unknown]

NARRATIVE: CASE EVENT DATE: 20220525
